FAERS Safety Report 8724971 (Version 2)
Quarter: 2015Q2

REPORT INFORMATION
  Report Type: Report from Study
  Country: US (occurrence: US)
  Receive Date: 20120815
  Receipt Date: 20150625
  Transmission Date: 20150821
  Serious: Yes (Other)
  Sender: FDA-Public Use
  Company Number: US-ROCHE-1101382

PATIENT
  Age: 42 Year
  Sex: Male

DRUGS (18)
  1. ACTIVASE [Suspect]
     Active Substance: ALTEPLASE
     Dosage: 0.75 MG/KG OVER 30 MINS.
     Route: 040
  2. ACTIVASE [Suspect]
     Active Substance: ALTEPLASE
     Indication: VENTRICULAR ARRHYTHMIA
     Dosage: 50 MG OVER 30 MINS.
     Route: 040
  3. ACTIVASE [Suspect]
     Active Substance: ALTEPLASE
     Dosage: 35 MG OVER 60 MINS.?100 MG IN 200 ML DISTILLED WATER
     Route: 040
  4. BRETYLIUM [Concomitant]
     Dosage: REDUCED TO 2MG/MIN
     Route: 065
     Dates: start: 19960417, end: 19960417
  5. PRONESTYL [Concomitant]
     Active Substance: PROCAINAMIDE HYDROCHLORIDE
     Route: 065
     Dates: start: 19960417
  6. ACTIVASE [Suspect]
     Active Substance: ALTEPLASE
     Indication: ACUTE MYOCARDIAL INFARCTION
     Dosage: 15 MIU (30 ML)?100 MG IN 200 ML DISTILLED WATER
     Route: 040
     Dates: start: 19960417
  7. ACTIVASE [Suspect]
     Active Substance: ALTEPLASE
     Dosage: 0.50 MG/KG OVER 60 MINS.
     Route: 040
  8. BRETYLIUM [Concomitant]
     Dosage: INCREASED TO 4MG/MIN
     Route: 065
     Dates: start: 19960417, end: 19960417
  9. LOPRESSOR [Concomitant]
     Active Substance: METOPROLOL TARTRATE
     Route: 042
     Dates: start: 19960417
  10. STREPTOKINASE [Concomitant]
     Active Substance: STREPTOKINASE
     Dosage: 1.5 MILLION UNITS IN 150 ML NS GIVEN OVER 60 MINS. SET PUMP AT 200.
     Route: 065
  11. HEPARIN [Concomitant]
     Active Substance: HEPARIN SODIUM
     Dosage: 5000 UNITS
     Route: 040
  12. LIDOCAINE. [Concomitant]
     Active Substance: LIDOCAINE
     Route: 065
     Dates: start: 19960417
  13. ACTIVASE [Suspect]
     Active Substance: ALTEPLASE
     Dosage: 15 MG IVP
     Route: 040
  14. LOPRESSOR [Concomitant]
     Active Substance: METOPROLOL TARTRATE
     Route: 048
  15. HEPARIN [Concomitant]
     Active Substance: HEPARIN SODIUM
     Dosage: 1000 UNITS
     Route: 042
     Dates: start: 19960417, end: 19960420
  16. LOPRESSOR [Concomitant]
     Active Substance: METOPROLOL TARTRATE
     Route: 048
     Dates: start: 19960417
  17. AMIODARONE [Concomitant]
     Active Substance: AMIODARONE
     Dosage: OVER 10 MIN
     Route: 042
     Dates: start: 19960417, end: 19960418
  18. ASPIRIN. [Concomitant]
     Active Substance: ASPIRIN
     Route: 048
     Dates: start: 19960417

REACTIONS (4)
  - Blood creatine phosphokinase increased [Unknown]
  - Haematocrit decreased [Unknown]
  - Gastrointestinal haemorrhage [Unknown]
  - Haemoglobin decreased [Unknown]

NARRATIVE: CASE EVENT DATE: 19960420
